FAERS Safety Report 5638960-3 (Version None)
Quarter: 2008Q1

REPORT INFORMATION
  Report Type: 
  Country: None (occurrence: None)
  Receive Date: 20080226
  Receipt Date: 20080218
  Transmission Date: 20080703
  Serious: Yes (Death, Other)
  Sender: FDA-Public Use
  Company Number: CA-PURDUE-USA_2006_0024215

PATIENT
  Age: 27 Year
  Sex: Male
  Weight: 150 kg

DRUGS (2)
  1. OXYCONTIN [Suspect]
     Indication: MUSCLE INJURY
     Dosage: UNK UNK, UNK
  2. UNKNOWN [Concomitant]

REACTIONS (5)
  - CARDIOMEGALY [None]
  - OVERDOSE [None]
  - PNEUMONIA [None]
  - RESPIRATORY DEPRESSION [None]
  - UNRESPONSIVE TO STIMULI [None]
